FAERS Safety Report 4340259-2 (Version None)
Quarter: 2004Q2

REPORT INFORMATION
  Report Type: 
  Country: None (occurrence: None)
  Receive Date: 20040414
  Receipt Date: 20040330
  Transmission Date: 20050107
  Serious: Yes (Other)
  Sender: FDA-Public Use
  Company Number: 2004-0006874

PATIENT
  Age: 54 Year
  Sex: Male

DRUGS (5)
  1. VIREAD [Suspect]
     Indication: HIV INFECTION
     Dosage: ORAL
     Route: 048
     Dates: start: 20030201
  2. LOPINAVIR/RITONAVIR (KALETRA) [Suspect]
     Indication: HIV INFECTION
     Dates: start: 20030201
  3. EFAVIRENZ (EFAVIRENZ) [Suspect]
     Dates: start: 20030201, end: 20030301
  4. ABACAVIR (ABACAVIR) [Suspect]
     Dates: start: 20030201
  5. NEVIRAPINE (NEVIRAPINE) [Suspect]
     Indication: HIV INFECTION
     Dosage: ORAL
     Route: 048
     Dates: start: 20030301

REACTIONS (7)
  - ABNORMAL DREAMS [None]
  - DIARRHOEA [None]
  - HEADACHE [None]
  - MYALGIA [None]
  - RHINORRHOEA [None]
  - STAPHYLOCOCCAL INFECTION [None]
  - SUBCUTANEOUS ABSCESS [None]
